FAERS Safety Report 9455610 (Version 2)
Quarter: 2013Q3

REPORT INFORMATION
  Report Type: Spontaneous
  Country: US (occurrence: US)
  Receive Date: 20130813
  Receipt Date: 20130923
  Transmission Date: 20140515
  Serious: No
  Sender: FDA-Public Use
  Company Number: US-PFIZER INC-2013233571

PATIENT
  Age: 57 Year
  Sex: Female

DRUGS (5)
  1. XELJANZ [Suspect]
     Indication: RHEUMATOID ARTHRITIS
     Dosage: 5 MG, 2X/DAY
     Route: 048
     Dates: start: 20130625
  2. PREDNISONE [Concomitant]
     Dosage: 7.5 MG (2.5 MG IN AM, 5.0 MG IN PM)
  3. NAPROXEN [Concomitant]
     Dosage: 750 MG, 1X/DAY
  4. FOSAMAX [Concomitant]
     Dosage: 70 MG, WEEKLY
  5. VOLTAREN [Concomitant]
     Dosage: UNK

REACTIONS (10)
  - Muscle spasms [Recovering/Resolving]
  - Arthralgia [Recovering/Resolving]
  - Haemoglobin decreased [Unknown]
  - Haematocrit decreased [Unknown]
  - Mean cell haemoglobin concentration decreased [Unknown]
  - Red cell distribution width increased [Unknown]
  - Platelet count increased [Unknown]
  - Neutrophil count increased [Unknown]
  - Lymphocyte count decreased [Unknown]
  - Albumin globulin ratio decreased [Unknown]
